FAERS Safety Report 22619412 (Version 2)
Quarter: 2024Q3

REPORT INFORMATION
  Report Type: Spontaneous
  Country: US (occurrence: US)
  Receive Date: 20230620
  Receipt Date: 20240711
  Transmission Date: 20241017
  Serious: No
  Sender: PIERRE FABRE MEDICAMENT
  Company Number: US-PFM-2023-01926

PATIENT
  Sex: Female
  Weight: 8.16 kg

DRUGS (4)
  1. HEMANGEOL [Suspect]
     Active Substance: PROPRANOLOL HYDROCHLORIDE
     Indication: Haemangioma
     Dosage: 0.6 ML, BID (2/DAY), FOR 1 WEEK
     Route: 048
     Dates: start: 20230321
  2. HEMANGEOL [Suspect]
     Active Substance: PROPRANOLOL HYDROCHLORIDE
     Dosage: 1.2 ML, BID (2/DAY), FOR 1 WEEK
     Route: 048
  3. HEMANGEOL [Suspect]
     Active Substance: PROPRANOLOL HYDROCHLORIDE
     Dosage: 1.6 ML, BID (2/DAY), FOR MAINTENANCE DOSING
     Route: 048
  4. HEMANGEOL [Suspect]
     Active Substance: PROPRANOLOL HYDROCHLORIDE
     Dosage: 3.2 ML
     Route: 065

REACTIONS (4)
  - Blood glucose abnormal [Unknown]
  - Somnolence [Unknown]
  - Intentional product use issue [Unknown]
  - Incorrect dose administered [Unknown]
